FAERS Safety Report 9269663 (Version 1)
Quarter: 2013Q2

REPORT INFORMATION
  Report Type: Spontaneous
  Country: DE (occurrence: DE)
  Receive Date: 20130503
  Receipt Date: 20130503
  Transmission Date: 20140414
  Serious: Yes (Other)
  Sender: FDA-Public Use
  Company Number: DE-BRISTOL-MYERS SQUIBB COMPANY-18825901

PATIENT
  Sex: Male

DRUGS (2)
  1. BYDUREON [Suspect]
  2. GLIMEPIRIDE [Concomitant]

REACTIONS (2)
  - Sepsis [Unknown]
  - Blood glucose increased [Unknown]
